FAERS Safety Report 5995602-5 (Version None)
Quarter: 2008Q4

REPORT INFORMATION
  Report Type: 
  Country: None (occurrence: None)
  Receive Date: 20081212
  Receipt Date: 20081002
  Transmission Date: 20090506
  Serious: No
  Sender: FDA-Public Use
  Company Number: US-ABBOTT-08P-163-0479368-00

PATIENT
  Sex: Female
  Weight: 106.69 kg

DRUGS (5)
  1. HUMIRA [Suspect]
     Indication: COLITIS ULCERATIVE
     Route: 058
     Dates: start: 20080601
  2. MESALAMINE [Concomitant]
     Indication: COLITIS ULCERATIVE
  3. VENLAFAXINE HCL [Concomitant]
     Indication: DEPRESSION
  4. VITAMINS [Concomitant]
     Indication: DRUG USE FOR UNKNOWN INDICATION
  5. HYDROCORTISONE [Concomitant]
     Indication: ECZEMA

REACTIONS (2)
  - ERYTHEMA [None]
  - PRURITUS GENERALISED [None]
